FAERS Safety Report 22356224 (Version 1)
Quarter: 2023Q2

REPORT INFORMATION
  Report Type: Spontaneous
  Country: US (occurrence: None)
  Receive Date: 20230523
  Receipt Date: 20230523
  Transmission Date: 20230722
  Serious: Yes (Hospitalization)
  Sender: FDA-Public Use
  Company Number: None

PATIENT
  Age: 59 Year
  Sex: Male
  Weight: 123.9 kg

DRUGS (1)
  1. MIRCERA [Suspect]
     Active Substance: METHOXY POLYETHYLENE GLYCOL-EPOETIN BETA
     Indication: Anaemia
     Dosage: FREQUENCY : EVERY OTHER WEEK;?
     Route: 042
     Dates: start: 20230501, end: 20230515

REACTIONS (8)
  - Chest pain [None]
  - Dyspnoea [None]
  - Dialysis [None]
  - Blood pressure decreased [None]
  - Paraesthesia [None]
  - Pruritus [None]
  - Drug hypersensitivity [None]
  - Drug hypersensitivity [None]

NARRATIVE: CASE EVENT DATE: 20230515
